FAERS Safety Report 8174371-7 (Version None)
Quarter: 2012Q1

REPORT INFORMATION
  Report Type: 
  Country: None (occurrence: None)
  Receive Date: 20120229
  Receipt Date: 20120224
  Transmission Date: 20120608
  Serious: Yes (Death)
  Sender: FDA-Public Use
  Company Number: TN-SANOFI-AVENTIS-2012SA012551

PATIENT
  Age: 76 Year
  Sex: Male

DRUGS (5)
  1. ASPIRIN [Concomitant]
     Route: 048
     Dates: end: 20111105
  2. ATENOLOL AND CHLORTHALIDONE [Suspect]
     Indication: STENT PLACEMENT
     Route: 048
     Dates: start: 20110605, end: 20111105
  3. DILACOR XR [Concomitant]
     Route: 048
     Dates: end: 20111105
  4. ISOSORBIDE DINITRATE [Concomitant]
     Route: 048
     Dates: end: 20111105
  5. ATENOLOL AND CHLORTHALIDONE [Suspect]
     Indication: ACUTE CORONARY SYNDROME
     Route: 048
     Dates: start: 20110605, end: 20111105

REACTIONS (1)
  - RENAL FAILURE [None]
